FAERS Safety Report 7866167-8 (Version None)
Quarter: 2011Q4

REPORT INFORMATION
  Report Type: 
  Country: None (occurrence: None)
  Receive Date: 20111028
  Receipt Date: 20110504
  Transmission Date: 20120403
  Serious: No
  Sender: FDA-Public Use
  Company Number: US-GLAXOSMITHKLINE-A0925786A

PATIENT
  Age: 44 Year
  Sex: Male

DRUGS (3)
  1. SINGULAIR [Concomitant]
  2. FLOVENT [Suspect]
     Indication: ASTHMA
     Route: 055
     Dates: start: 20100101
  3. ADVAIR DISKUS 100/50 [Suspect]
     Indication: ASTHMA
     Dosage: 1PUFF TWICE PER DAY
     Route: 055
     Dates: start: 20110429, end: 20110430

REACTIONS (2)
  - BLOOD PRESSURE INCREASED [None]
  - OVERDOSE [None]
